FAERS Safety Report 10506702 (Version 1)
Quarter: 2014Q4

REPORT INFORMATION
  Report Type: Spontaneous
  Country: GB (occurrence: None)
  Receive Date: 20141007
  Receipt Date: 20141007
  Transmission Date: 20150528
  Serious: Yes (Other)
  Sender: FDA-Public Use
  Company Number: ABR_01830_2014

PATIENT
  Sex: Male

DRUGS (3)
  1. RAMIPRIL (RAMIPRIL) [Suspect]
     Active Substance: RAMIPRIL
     Indication: PRODUCT USED FOR UNKNOWN INDICATION
     Route: 048
  2. BRILIQUE [Suspect]
     Active Substance: TICAGRELOR
     Indication: ACUTE CORONARY SYNDROME
     Route: 048
     Dates: start: 20140204
  3. GLYCERYL TRINITRATE (GLYCERYL TRINITRATE) [Suspect]
     Active Substance: NITROGLYCERIN
     Indication: CHEST PAIN
     Dosage: (DF)
     Route: 060

REACTIONS (6)
  - Muscle spasms [None]
  - Loss of consciousness [None]
  - Pain [None]
  - Dizziness [None]
  - Chest pain [None]
  - Headache [None]

NARRATIVE: CASE EVENT DATE: 2014
